FAERS Safety Report 22021593 (Version 1)
Quarter: 2023Q1

REPORT INFORMATION
  Report Type: Spontaneous
  Country: FR (occurrence: None)
  Receive Date: 20230222
  Receipt Date: 20230222
  Transmission Date: 20230418
  Serious: Yes (Hospitalization, Other)
  Sender: FDA-Public Use
  Company Number: 2023A040462

PATIENT
  Age: 66 Year
  Sex: Male
  Weight: 81 kg

DRUGS (1)
  1. DAPAGLIFLOZIN [Suspect]
     Active Substance: DAPAGLIFLOZIN
     Indication: Type 2 diabetes mellitus
     Dosage: 10 MG/DAY
     Route: 048
     Dates: start: 20220528, end: 20220806

REACTIONS (2)
  - Skin ulcer [Recovered/Resolved with Sequelae]
  - Amputation [Recovered/Resolved with Sequelae]

NARRATIVE: CASE EVENT DATE: 20220701
